FAERS Safety Report 25442078 (Version 2)
Quarter: 2025Q3

REPORT INFORMATION
  Report Type: Spontaneous
  Country: US (occurrence: US)
  Receive Date: 20250616
  Receipt Date: 20250810
  Transmission Date: 20251021
  Serious: Yes (Other)
  Sender: ALEXION PHARMACEUTICALS
  Company Number: US-ASTRAZENECA-202502USA008525US

PATIENT
  Age: 46 Year
  Sex: Female
  Weight: 84.4 kg

DRUGS (36)
  1. DURVALUMAB [Suspect]
     Active Substance: DURVALUMAB
     Indication: HER2 positive biliary tract cancer
     Route: 065
     Dates: start: 20240717, end: 20240717
  2. DURVALUMAB [Suspect]
     Active Substance: DURVALUMAB
     Route: 065
     Dates: start: 20240807, end: 20240807
  3. DURVALUMAB [Suspect]
     Active Substance: DURVALUMAB
     Route: 065
     Dates: start: 20240918, end: 20240918
  4. DURVALUMAB [Suspect]
     Active Substance: DURVALUMAB
     Route: 065
     Dates: start: 20241009, end: 20241009
  5. DURVALUMAB [Suspect]
     Active Substance: DURVALUMAB
     Route: 065
     Dates: start: 20241030, end: 20241030
  6. DURVALUMAB [Suspect]
     Active Substance: DURVALUMAB
     Route: 065
     Dates: start: 20241120, end: 20241120
  7. DURVALUMAB [Suspect]
     Active Substance: DURVALUMAB
     Route: 065
     Dates: start: 20241211, end: 20241211
  8. DURVALUMAB [Suspect]
     Active Substance: DURVALUMAB
     Route: 065
     Dates: start: 20240108, end: 20240108
  9. DURVALUMAB [Suspect]
     Active Substance: DURVALUMAB
     Route: 065
     Dates: start: 20240129, end: 20240129
  10. GEMCITABINE [Suspect]
     Active Substance: GEMCITABINE
     Route: 065
     Dates: start: 20240717, end: 20240717
  11. GEMCITABINE [Suspect]
     Active Substance: GEMCITABINE
     Route: 065
     Dates: start: 20240807, end: 20240807
  12. GEMCITABINE [Suspect]
     Active Substance: GEMCITABINE
     Route: 065
     Dates: start: 20240814, end: 20240814
  13. GEMCITABINE [Suspect]
     Active Substance: GEMCITABINE
     Route: 065
     Dates: start: 20240918, end: 20240918
  14. GEMCITABINE [Suspect]
     Active Substance: GEMCITABINE
     Route: 065
     Dates: start: 20240925, end: 20240925
  15. GEMCITABINE [Suspect]
     Active Substance: GEMCITABINE
     Route: 065
     Dates: start: 20241009, end: 20241009
  16. GEMCITABINE [Suspect]
     Active Substance: GEMCITABINE
     Route: 065
     Dates: start: 20241016, end: 20241016
  17. GEMCITABINE [Suspect]
     Active Substance: GEMCITABINE
     Route: 065
     Dates: start: 20241030, end: 20241030
  18. GEMCITABINE [Suspect]
     Active Substance: GEMCITABINE
     Route: 065
     Dates: start: 20241106, end: 20241106
  19. GEMCITABINE [Suspect]
     Active Substance: GEMCITABINE
     Route: 065
     Dates: start: 20241120, end: 20241120
  20. GEMCITABINE [Suspect]
     Active Substance: GEMCITABINE
     Route: 065
     Dates: start: 20241211, end: 20241211
  21. GEMCITABINE [Suspect]
     Active Substance: GEMCITABINE
     Route: 065
     Dates: start: 20241218, end: 20241218
  22. CISPLATIN [Suspect]
     Active Substance: CISPLATIN
     Indication: HER2 positive biliary tract cancer
     Route: 065
     Dates: start: 20240717, end: 20240717
  23. CISPLATIN [Suspect]
     Active Substance: CISPLATIN
     Route: 065
     Dates: start: 20240807, end: 20240807
  24. CISPLATIN [Suspect]
     Active Substance: CISPLATIN
     Route: 065
     Dates: start: 20240814, end: 20240814
  25. CISPLATIN [Suspect]
     Active Substance: CISPLATIN
     Route: 065
     Dates: start: 20240918, end: 20240918
  26. CISPLATIN [Suspect]
     Active Substance: CISPLATIN
     Route: 065
     Dates: start: 20240925, end: 20240925
  27. CISPLATIN [Suspect]
     Active Substance: CISPLATIN
     Route: 065
     Dates: start: 20241009, end: 20241009
  28. CISPLATIN [Suspect]
     Active Substance: CISPLATIN
     Route: 065
     Dates: start: 20241016, end: 20241016
  29. CISPLATIN [Suspect]
     Active Substance: CISPLATIN
     Route: 065
     Dates: start: 20241030, end: 20241030
  30. CISPLATIN [Suspect]
     Active Substance: CISPLATIN
     Route: 065
     Dates: start: 20241106, end: 20241106
  31. CISPLATIN [Suspect]
     Active Substance: CISPLATIN
     Route: 065
     Dates: start: 20241120, end: 20241120
  32. CISPLATIN [Suspect]
     Active Substance: CISPLATIN
     Route: 065
     Dates: start: 20241211, end: 20241211
  33. CISPLATIN [Suspect]
     Active Substance: CISPLATIN
     Route: 065
     Dates: start: 20241218, end: 20241218
  34. CISPLATIN [Suspect]
     Active Substance: CISPLATIN
     Route: 065
     Dates: start: 20241218, end: 20241218
  35. DEXAMETHASONE [Concomitant]
     Active Substance: DEXAMETHASONE
     Route: 065
  36. APREPITANT [Concomitant]
     Active Substance: APREPITANT
     Route: 065

REACTIONS (3)
  - Aspartate aminotransferase increased [Recovered/Resolved]
  - Alanine aminotransferase increased [Recovered/Resolved]
  - Diagnostic aspiration [Unknown]

NARRATIVE: CASE EVENT DATE: 20240828
